FAERS Safety Report 25377646 (Version 1)
Quarter: 2025Q2

REPORT INFORMATION
  Report Type: Spontaneous
  Country: JP (occurrence: JP)
  Receive Date: 20250530
  Receipt Date: 20250530
  Transmission Date: 20250717
  Serious: Yes (Life-Threatening, Hospitalization)
  Sender: ACCORD
  Company Number: JP-Accord-486956

PATIENT
  Age: 75 Year
  Sex: Female
  Weight: 39.4 kg

DRUGS (8)
  1. CISPLATIN [Suspect]
     Active Substance: CISPLATIN
     Indication: Thymoma
     Dosage: DAYS 1-4
  2. DOXORUBICIN [Concomitant]
     Active Substance: DOXORUBICIN
     Indication: Thymoma
     Dosage: DAY 1
  3. METHYLPREDNISOLONE [Concomitant]
     Active Substance: METHYLPREDNISOLONE
     Indication: Thymoma
     Dosage: DAY 1-4
  4. LEVOTHYROXINE [Concomitant]
     Active Substance: LEVOTHYROXINE
  5. VONOPRAZAN [Concomitant]
     Active Substance: VONOPRAZAN
  6. ELDECALCITOL [Concomitant]
     Active Substance: ELDECALCITOL
  7. POLYCARBOPHIL [Concomitant]
     Active Substance: POLYCARBOPHIL
  8. METHYLPREDNISOLONE [Concomitant]
     Active Substance: METHYLPREDNISOLONE
     Indication: Thymoma
     Dosage: DAYS 5 AND 6

REACTIONS (7)
  - Renal salt-wasting syndrome [Recovering/Resolving]
  - Hypovolaemic shock [Recovering/Resolving]
  - Hyponatraemia [Recovering/Resolving]
  - Hypokalaemia [Recovering/Resolving]
  - Hypomagnesaemia [Recovering/Resolving]
  - Hypocalcaemia [Recovering/Resolving]
  - Hypophosphataemia [Recovering/Resolving]
